FAERS Safety Report 7658314-8 (Version None)
Quarter: 2011Q3

REPORT INFORMATION
  Report Type: 
  Country: None (occurrence: None)
  Receive Date: 20110805
  Receipt Date: 20110802
  Transmission Date: 20111222
  Serious: No
  Sender: FDA-Public Use
  Company Number: US-PFIZER INC-2011175980

PATIENT
  Sex: Male

DRUGS (1)
  1. SUTENT [Suspect]
     Indication: RENAL CELL CARCINOMA
     Dosage: 50 MG, 1 CAPSULE 1X/DAY FOR 28 DAYS 14 DAYS OFF THEN REPEAT
     Route: 048

REACTIONS (2)
  - YELLOW SKIN [None]
  - FATIGUE [None]
